FAERS Safety Report 9251500 (Version 3)
Quarter: 2013Q4

REPORT INFORMATION
  Report Type: Spontaneous
  Country: US (occurrence: US)
  Receive Date: 20130424
  Receipt Date: 20131122
  Transmission Date: 20140711
  Serious: Yes (Other)
  Sender: FDA-Public Use
  Company Number: US-ASTRAZENECA-2013SE27263

PATIENT
  Age: 50 Year
  Sex: Female
  Weight: 58.5 kg

DRUGS (20)
  1. NEXIUM [Suspect]
     Indication: GASTROOESOPHAGEAL REFLUX DISEASE
     Route: 048
     Dates: start: 2008, end: 2011
  2. NEXIUM [Suspect]
     Indication: DYSPEPSIA
     Route: 048
     Dates: start: 2008, end: 2011
  3. NEXIUM [Suspect]
     Indication: GASTROOESOPHAGEAL REFLUX DISEASE
     Route: 048
     Dates: start: 20100701
  4. NEXIUM [Suspect]
     Indication: DYSPEPSIA
     Route: 048
     Dates: start: 20100701
  5. PREVACID [Concomitant]
     Indication: GASTROOESOPHAGEAL REFLUX DISEASE
     Dates: start: 20060302
  6. ZOCOR [Concomitant]
     Dates: start: 20060103
  7. NAPROXEN [Concomitant]
     Dates: start: 20060103
  8. METOCLOPRAMIDE [Concomitant]
     Dates: start: 20060103
  9. OXAZEPAM [Concomitant]
     Dates: start: 20060204
  10. LYRICA [Concomitant]
  11. TERCONAZOLE [Concomitant]
  12. AMOXICILLIN [Concomitant]
  13. IBUPROFEN [Concomitant]
  14. COMBIVENT [Concomitant]
  15. FELODIPINE ER [Concomitant]
     Dates: start: 20060103
  16. PAROXETINE HCL [Concomitant]
     Dates: start: 20060103
  17. GABAPENTIN [Concomitant]
     Dates: start: 20060118
  18. FLUCONAZOLE [Concomitant]
     Dates: start: 20060129
  19. HYDROCODONE W/ACETAMINOPHEN [Concomitant]
     Dates: start: 20080811
  20. AVAPRO [Concomitant]
     Dates: start: 20090423

REACTIONS (14)
  - Hip fracture [Unknown]
  - Spinal cord compression [Unknown]
  - Osteoporosis [Unknown]
  - Lumbar vertebral fracture [Unknown]
  - Bone disorder [Unknown]
  - Multiple fractures [Unknown]
  - Ankle fracture [Unknown]
  - Cataract [Unknown]
  - Intervertebral disc protrusion [Unknown]
  - Intervertebral disc degeneration [Unknown]
  - Fall [Unknown]
  - Spinal osteoarthritis [Unknown]
  - Scoliosis [Unknown]
  - Osteoarthritis [Unknown]
